FAERS Safety Report 10358416 (Version 1)
Quarter: 2014Q3

REPORT INFORMATION
  Report Type: Spontaneous
  Country: US (occurrence: US)
  Receive Date: 20140801
  Receipt Date: 20140801
  Transmission Date: 20150326
  Serious: Yes (Death, Hospitalization, Other)
  Sender: FDA-Public Use
  Company Number: US-BAXTER-2014BAX042812

PATIENT
  Sex: Female

DRUGS (2)
  1. DIANEAL LOW CALCIUM PERITONEAL DIALYSIS SOLUTION WITH DEXTROSE [Suspect]
     Active Substance: CALCIUM CHLORIDE\DEXTROSE\MAGNESIUM CHLORIDE\SODIUM CHLORIDE\SODIUM LACTATE
     Indication: PERITONEAL DIALYSIS
     Route: 033
     Dates: start: 2012, end: 201406
  2. BLOOD TRANSFUSION [Concomitant]
     Active Substance: WHOLE BLOOD
     Indication: PLASMA CELL MYELOMA

REACTIONS (8)
  - Cardio-respiratory arrest [Fatal]
  - Disorientation [Unknown]
  - Dysphagia [Unknown]
  - Oesophageal ulcer haemorrhage [Unknown]
  - Anaemia [Fatal]
  - Gastric ulcer haemorrhage [Unknown]
  - Plasma cell myeloma [Fatal]
  - Refractory cancer [Fatal]

NARRATIVE: CASE EVENT DATE: 20140712
